FAERS Safety Report 8107071 (Version 3)
Quarter: 2013Q4

REPORT INFORMATION
  Report Type: Spontaneous
  Country: US (occurrence: US)
  Receive Date: 20110825
  Receipt Date: 20131202
  Transmission Date: 20140711
  Serious: Yes (Hospitalization, Other)
  Sender: FDA-Public Use
  Company Number: US-BAYER-2011-074987

PATIENT
  Age: 29 Year
  Sex: Female
  Weight: 68.03 kg

DRUGS (3)
  1. YASMIN [Suspect]
     Dosage: UNK
     Dates: start: 2001
  2. ALBUTEROL INHALER [Concomitant]
  3. ALEVE COLD + SINUS [Concomitant]

REACTIONS (4)
  - Gallbladder injury [None]
  - Injury [None]
  - Biliary dyskinesia [None]
  - Cholecystitis acute [None]
